FAERS Safety Report 25989645 (Version 1)
Quarter: 2025Q4

REPORT INFORMATION
  Report Type: Spontaneous
  Country: US (occurrence: None)
  Receive Date: 20251031
  Receipt Date: 20251031
  Transmission Date: 20260117
  Serious: Yes (Hospitalization)
  Sender: FDA-CTU
  Company Number: None

PATIENT
  Age: 74 Year
  Sex: Male

DRUGS (37)
  1. AMBRISENTAN [Suspect]
     Active Substance: AMBRISENTAN
     Indication: Pulmonary hypertension
     Dosage: FREQUENCY : DAILY;?
     Route: 048
     Dates: start: 20250415, end: 20250917
  2. TRAMADOL [Concomitant]
     Active Substance: TRAMADOL
  3. GABAPENTIN [Concomitant]
     Active Substance: GABAPENTIN
  4. PREGABALIN [Concomitant]
     Active Substance: PREGABALIN
  5. acetaminophen~codeine [Concomitant]
  6. BENZONATATE [Concomitant]
     Active Substance: BENZONATATE
  7. Peridex mouthwash [Concomitant]
  8. CALCIUM ACETATE [Concomitant]
     Active Substance: CALCIUM ACETATE
  9. PANTOPRAZOLE [Concomitant]
     Active Substance: PANTOPRAZOLE
  10. URSODIOL [Concomitant]
     Active Substance: URSODIOL
  11. RENVELA [Concomitant]
     Active Substance: SEVELAMER CARBONATE
  12. TACROLIMUS [Concomitant]
     Active Substance: TACROLIMUS
  13. MIDODRINE [Concomitant]
     Active Substance: MIDODRINE
  14. VITAMIN C [Concomitant]
     Active Substance: ASCORBIC ACID
  15. ZINC [Concomitant]
     Active Substance: ZINC
  16. oxide top oint [Concomitant]
  17. voltaren top gel [Concomitant]
  18. EMLA [Concomitant]
     Active Substance: LIDOCAINE\PRILOCAINE
  19. FLUCONAZOLE [Concomitant]
     Active Substance: FLUCONAZOLE
  20. ZOFRAN [Concomitant]
     Active Substance: ONDANSETRON HYDROCHLORIDE
  21. ZINC SULFATE [Concomitant]
     Active Substance: ZINC SULFATE
  22. diltiazem white petrolatum top oint [Concomitant]
  23. INSULIN LISPRO [Concomitant]
     Active Substance: INSULIN LISPRO
  24. silver sulfadiazine top cream [Concomitant]
  25. VITAMIN D2 [Concomitant]
     Active Substance: ERGOCALCIFEROL
  26. LOKELMA [Concomitant]
     Active Substance: SODIUM ZIRCONIUM CYCLOSILICATE
  27. COLLAGENASE SANTYL [Concomitant]
     Active Substance: COLLAGENASE CLOSTRIDIUM HISTOLYTICUM
  28. ASPIRIN [Concomitant]
     Active Substance: ASPIRIN
  29. ipratropium inhl soln [Concomitant]
  30. ALBUTEROL SULFATE [Concomitant]
     Active Substance: ALBUTEROL SULFATE
  31. COLACE [Concomitant]
     Active Substance: DOCUSATE SODIUM
  32. MELATONIN [Concomitant]
     Active Substance: MELATONIN
  33. INSULIN DETEMIR [Concomitant]
     Active Substance: INSULIN DETEMIR
  34. TENAPANOR [Concomitant]
     Active Substance: TENAPANOR
  35. FLONASE [Concomitant]
     Active Substance: FLUTICASONE PROPIONATE
  36. ATORVASTATIN [Concomitant]
     Active Substance: ATORVASTATIN
  37. novasource renal [Concomitant]

REACTIONS (10)
  - Skin ulcer [None]
  - Osteomyelitis [None]
  - Post procedural complication [None]
  - Pneumonia aspiration [None]
  - Embolic cerebral infarction [None]
  - Rectal ulcer [None]
  - Abdominal wall haematoma [None]
  - Enterococcal infection [None]
  - Septic shock [None]
  - Cardiogenic shock [None]

NARRATIVE: CASE EVENT DATE: 20250731
